FAERS Safety Report 8953748 (Version 1)
Quarter: 2012Q4

REPORT INFORMATION
  Report Type: 
  Country: GB (occurrence: GB)
  Receive Date: 20121206
  Receipt Date: 20121206
  Transmission Date: 20130627
  Serious: Yes (Disabling)
  Sender: FDA-Public Use
  Company Number: GB-MYLANLABS-2012S1024277

PATIENT
  Age: 53 Year
  Sex: Female
  Weight: 50.8 kg

DRUGS (4)
  1. MIRTAZAPINE [Suspect]
     Indication: INSOMNIA
     Route: 048
     Dates: start: 20120406
  2. MIRTAZAPINE [Suspect]
     Indication: DECREASED APPETITE
     Route: 048
     Dates: start: 20120406
  3. DIAZEPAM [Concomitant]
     Indication: PRODUCT USED FOR UNKNOWN INDICATION
  4. LITHIUM CARBONATE [Concomitant]
     Indication: PRODUCT USED FOR UNKNOWN INDICATION

REACTIONS (4)
  - Liver disorder [Unknown]
  - Pancreatic disorder [Unknown]
  - Restless legs syndrome [Unknown]
  - Weight increased [Unknown]
